FAERS Safety Report 13583716 (Version 3)
Quarter: 2017Q2

REPORT INFORMATION
  Report Type: Spontaneous
  Country: MX (occurrence: MX)
  Receive Date: 20170526
  Receipt Date: 20170602
  Transmission Date: 20170830
  Serious: Yes (Death)
  Sender: FDA-Public Use
  Company Number: MX-BEH-2017080640

PATIENT
  Age: 6 Year
  Sex: Female

DRUGS (6)
  1. AMINE [Concomitant]
     Route: 065
  2. CLUVOT [Suspect]
     Active Substance: FACTOR XIII CONCENTRATE (HUMAN)
     Indication: FACTOR XIII DEFICIENCY
     Dosage: 1250 IU, TOT (5 VIALS, 250 IU EACH VIAL)
     Route: 042
  3. CLUVOT [Suspect]
     Active Substance: FACTOR XIII CONCENTRATE (HUMAN)
     Indication: POST PROCEDURAL HAEMORRHAGE
  4. PLASMA [Concomitant]
     Active Substance: HUMAN PLASMA
     Route: 065
  5. AMINOCAPROIC ACID. [Concomitant]
     Active Substance: AMINOCAPROIC ACID
     Route: 065
  6. CRYOPRECIPITATE [Concomitant]
     Active Substance: CRYOPRECIPITATED ANTIHEMOPHILIC FACTOR (HUMAN)
     Route: 065

REACTIONS (1)
  - Post procedural complication [Fatal]
